FAERS Safety Report 9890488 (Version 1)
Quarter: 2014Q1

REPORT INFORMATION
  Report Type: Spontaneous
  Country: CZ (occurrence: CZ)
  Receive Date: 20140212
  Receipt Date: 20140212
  Transmission Date: 20141002
  Serious: Yes (Life-Threatening, Hospitalization, Other)
  Sender: FDA-Public Use
  Company Number: CZ-ACCORD-021768

PATIENT
  Age: 69 Year
  Sex: Male
  Weight: 77 kg

DRUGS (1)
  1. IRINOTECAN [Suspect]
     Indication: RECTAL CANCER
     Dosage: 20 MG/ ML
     Route: 041
     Dates: start: 20140127, end: 20140127

REACTIONS (4)
  - Bronchospasm [Recovered/Resolved]
  - Hypertension [Recovered/Resolved]
  - Anaphylactic reaction [Recovered/Resolved]
  - Oxygen saturation decreased [Recovered/Resolved]
